FAERS Safety Report 5155550-X (Version None)
Quarter: 2006Q4

REPORT INFORMATION
  Report Type: 
  Country: None (occurrence: None)
  Receive Date: 20061114
  Receipt Date: 20061027
  Transmission Date: 20070319
  Serious: Yes (Disabling)
  Sender: FDA-Public Use
  Company Number: 36969

PATIENT
  Age: 48 Year
  Sex: Female

DRUGS (1)
  1. ALCAINE [Suspect]
     Dates: start: 20051201, end: 20051201

REACTIONS (4)
  - APPLICATION SITE REACTION [None]
  - BLINDNESS UNILATERAL [None]
  - HYPERSENSITIVITY [None]
  - VISUAL DISTURBANCE [None]
